FAERS Safety Report 23447567 (Version 2)
Quarter: 2024Q1

REPORT INFORMATION
  Report Type: Spontaneous
  Country: CA (occurrence: CA)
  Receive Date: 20240126
  Receipt Date: 20240215
  Transmission Date: 20240410
  Serious: Yes (Death)
  Sender: FDA-Public Use
  Company Number: CA-LEO Pharma-366913

PATIENT
  Sex: Male

DRUGS (2)
  1. ADBRY [Suspect]
     Active Substance: TRALOKINUMAB-LDRM
     Indication: Dermatitis atopic
     Dosage: NOT ASKED?FORMAT: PREFILLED SYRINGED 150 MG/ML?MAINTENANCE DOSE 2 INJECTIONS (300 MG) EVERY 2 WEEKS
     Dates: end: 20240110
  2. ADBRY [Suspect]
     Active Substance: TRALOKINUMAB-LDRM
     Indication: Dermatitis atopic
     Dosage: NOT ASKED?FORMAT: PREFILLED SYRINGED 150 MG/ML?LOADING DOSE 4 INJECTIONS (600 MG)?START DATE: AUG/SE
     Dates: start: 2022

REACTIONS (1)
  - Loss of consciousness [Fatal]

NARRATIVE: CASE EVENT DATE: 20240117
